FAERS Safety Report 11821976 (Version 1)
Quarter: 2015Q4

REPORT INFORMATION
  Report Type: Spontaneous
  Country: US (occurrence: US)
  Receive Date: 20151210
  Receipt Date: 20151210
  Transmission Date: 20160305
  Serious: No
  Sender: FDA-Public Use
  Company Number: US-JNJFOC-20150805866

PATIENT
  Sex: Female

DRUGS (4)
  1. CHLORMEZANONE [Concomitant]
     Active Substance: CHLORMEZANONE
  2. OXYCODONE [Concomitant]
     Active Substance: OXYCODONE
  3. MOBIC [Concomitant]
     Active Substance: MELOXICAM
  4. IMBRUVICA [Suspect]
     Active Substance: IBRUTINIB
     Indication: NON-HODGKIN^S LYMPHOMA
     Route: 048
     Dates: start: 20150703

REACTIONS (3)
  - Contusion [Not Recovered/Not Resolved]
  - Constipation [Not Recovered/Not Resolved]
  - Off label use [Unknown]

NARRATIVE: CASE EVENT DATE: 2015
